FAERS Safety Report 21146638 (Version 1)
Quarter: 2022Q3

REPORT INFORMATION
  Report Type: Spontaneous
  Country: VN (occurrence: None)
  Receive Date: 20220729
  Receipt Date: 20220729
  Transmission Date: 20221026
  Serious: Yes (Other)
  Sender: FDA-Public Use
  Company Number: VN-ROCHE-3148045

PATIENT
  Age: 44 Year
  Sex: Male

DRUGS (1)
  1. MABTHERA [Suspect]
     Active Substance: RITUXIMAB
     Indication: Waldenstrom^s macroglobulinaemia
     Route: 041

REACTIONS (4)
  - Pyrexia [Unknown]
  - Hypotension [Unknown]
  - Serum sickness [Unknown]
  - Off label use [Unknown]
